FAERS Safety Report 23945784 (Version 1)
Quarter: 2024Q2

REPORT INFORMATION
  Report Type: Spontaneous
  Country: CN (occurrence: CN)
  Receive Date: 20240606
  Receipt Date: 20240606
  Transmission Date: 20240716
  Serious: Yes (Life-Threatening)
  Sender: FDA-Public Use
  Company Number: CN-SHANGHAI JUNSHI BIOSCIENCES CO., LTD.-CN2024010244

PATIENT

DRUGS (4)
  1. TORIPALIMAB [Suspect]
     Active Substance: TORIPALIMAB
     Indication: Oesophageal carcinoma
     Dosage: 240 MG (D1), EVERY 21 DAYS
     Route: 041
     Dates: start: 20240430, end: 20240430
  2. PACLITAXEL [Suspect]
     Active Substance: PACLITAXEL
     Indication: Oesophageal carcinoma
     Dosage: 170 MG (130MG/M^2, D1, D8), EVERY 21 DAYS AS A CYCLE
     Route: 041
     Dates: start: 20240430, end: 20240507
  3. CISPLATIN [Suspect]
     Active Substance: CISPLATIN
     Indication: Oesophageal carcinoma
     Dosage: 40 MG (D1, QD), EVERY 21 DAYS AS A CYCLE
     Dates: start: 20240430, end: 20240430
  4. CISPLATIN [Suspect]
     Active Substance: CISPLATIN
     Dosage: 30 MG (D2-D3, QD), EVERY 21 DAYS AS A CYCLE
     Route: 041
     Dates: start: 20240430, end: 20240502

REACTIONS (1)
  - Granulocyte count decreased [Unknown]

NARRATIVE: CASE EVENT DATE: 20240517
